FAERS Safety Report 6963341-X (Version None)
Quarter: 2010Q3

REPORT INFORMATION
  Report Type: 
  Country: None (occurrence: None)
  Receive Date: 20100823
  Receipt Date: 20100719
  Transmission Date: 20110219
  Serious: No
  Sender: FDA-Public Use
  Company Number: 015774

PATIENT
  Sex: Female
  Weight: 72.6 kg

DRUGS (4)
  1. CIMZIA [Suspect]
     Indication: CROHN'S DISEASE
     Dosage: (SUBCUTANEOUS)
     Route: 058
     Dates: start: 20100101, end: 20100101
  2. MAXZIDE [Concomitant]
  3. LIISINOPRIL [Concomitant]
  4. NEXIUM /01479303/ [Concomitant]

REACTIONS (2)
  - ABDOMINAL PAIN [None]
  - ABDOMINAL RIGIDITY [None]
